FAERS Safety Report 8202531-5 (Version None)
Quarter: 2012Q1

REPORT INFORMATION
  Report Type: 
  Country: None (occurrence: None)
  Receive Date: 20120312
  Receipt Date: 20120307
  Transmission Date: 20120608
  Serious: Yes (Other)
  Sender: FDA-Public Use
  Company Number: US-AMGEN-USASP2011045675

PATIENT
  Age: 64 Year
  Sex: Female

DRUGS (6)
  1. PROLIA [Suspect]
     Indication: OSTEOPOROSIS
     Dosage: 60 MG, Q6MO
     Dates: start: 20110802
  2. MULTI-VITAMINS [Concomitant]
     Dosage: UNK
  3. CALCIUM [Concomitant]
     Dosage: 1 MG, UNK
  4. PRIMIDONE [Concomitant]
     Indication: CONVULSION
  5. VITAMIN D [Concomitant]
     Dosage: UNK
  6. DIAZEPAM [Concomitant]
     Indication: STRESS

REACTIONS (15)
  - PAIN [None]
  - POLLAKIURIA [None]
  - FEELING ABNORMAL [None]
  - BODY HEIGHT DECREASED [None]
  - HALLUCINATION, AUDITORY [None]
  - GRAND MAL CONVULSION [None]
  - PAIN IN EXTREMITY [None]
  - STRESS [None]
  - FATIGUE [None]
  - WEIGHT DECREASED [None]
  - AMNESIA [None]
  - CONVULSION [None]
  - NAUSEA [None]
  - POLYDIPSIA [None]
  - BEDRIDDEN [None]
